FAERS Safety Report 4512399-6 (Version None)
Quarter: 2004Q4

REPORT INFORMATION
  Report Type: 
  Country: None (occurrence: None)
  Receive Date: 20041123
  Receipt Date: 20041108
  Transmission Date: 20050328
  Serious: Yes (Hospitalization)
  Sender: FDA-Public Use
  Company Number: FI-ROCHE-358963

PATIENT
  Age: 62 Year
  Sex: Female
  Weight: 52 kg

DRUGS (11)
  1. TASMAR (TOLCAPONE) [Suspect]
     Indication: PARKINSON'S DISEASE
     Dosage: 100 MG 3 TIMES A DAY; ORAL
     Route: 048
     Dates: start: 20010925
  2. MADOPAR DEPOT [Concomitant]
  3. CARBIDOPA AND LEVODOPA [Concomitant]
  4. MEDOPARK QUICK [Concomitant]
  5. PERMAX [Concomitant]
  6. ATARIN [Concomitant]
  7. ESTROGEN NOS [Concomitant]
  8. LIPENAN [Concomitant]
  9. SEROQUEL [Concomitant]
  10. FLORINEF [Concomitant]
  11. CIPRAMIL [Concomitant]

REACTIONS (2)
  - LUMBAR SPINAL STENOSIS [None]
  - MOTOR DYSFUNCTION [None]
